FAERS Safety Report 14004703 (Version 1)
Quarter: 2017Q3

REPORT INFORMATION
  Report Type: Spontaneous
  Country: GB (occurrence: GB)
  Receive Date: 20170922
  Receipt Date: 20170922
  Transmission Date: 20171128
  Serious: Yes (Other)
  Sender: FDA-Public Use
  Company Number: GB-TORRENT-00015625

PATIENT
  Age: 77 Year
  Sex: Male
  Weight: 80 kg

DRUGS (9)
  1. CARBOCISTEINE [Concomitant]
     Active Substance: CARBOCYSTEINE
  2. SIMVASTATIN. [Concomitant]
     Active Substance: SIMVASTATIN
  3. CLOPIDOGREL [Suspect]
     Active Substance: CLOPIDOGREL BISULFATE
  4. SILDENAFIL. [Concomitant]
     Active Substance: SILDENAFIL
  5. FOSTAIR [Concomitant]
     Active Substance: BECLOMETHASONE\FORMOTEROL
  6. ASPIRIN. [Concomitant]
     Active Substance: ASPIRIN
  7. INDAPAMIDE. [Concomitant]
     Active Substance: INDAPAMIDE
  8. LOSARTAN. [Concomitant]
     Active Substance: LOSARTAN
  9. SALBUTAMOL [Concomitant]
     Active Substance: ALBUTEROL

REACTIONS (1)
  - Gynaecomastia [Recovering/Resolving]

NARRATIVE: CASE EVENT DATE: 20170906
